FAERS Safety Report 9018457 (Version 3)
Quarter: 2015Q2

REPORT INFORMATION
  Report Type: Report from Study
  Country: US (occurrence: US)
  Receive Date: 20130118
  Receipt Date: 20150402
  Transmission Date: 20150821
  Serious: Yes (Death, Other)
  Sender: FDA-Public Use
  Company Number: US-ASTELLAS-2013US000561

PATIENT
  Sex: Male
  Weight: 59 kg

DRUGS (1)
  1. ERLOTINIB [Suspect]
     Active Substance: ERLOTINIB
     Indication: LUNG NEOPLASM MALIGNANT
     Route: 048
     Dates: start: 20110819

REACTIONS (5)
  - Acute kidney injury [Unknown]
  - Urinary tract infection [Unknown]
  - Cerebrovascular accident [Fatal]
  - Blood sodium increased [Unknown]
  - Dehydration [Unknown]
